FAERS Safety Report 5003919-6 (Version None)
Quarter: 2006Q2

REPORT INFORMATION
  Report Type: 
  Country: None (occurrence: None)
  Receive Date: 20060517
  Receipt Date: 20060508
  Transmission Date: 20061013
  Serious: Yes (Hospitalization)
  Sender: FDA-Public Use
  Company Number: US-KINGPHARMUSA00001-K200600593

PATIENT
  Age: 64 Year
  Sex: Male

DRUGS (6)
  1. ALTACE [Suspect]
     Indication: CARDIAC FAILURE
     Dosage: 2.5 MG, QD
     Route: 048
     Dates: start: 20040306, end: 20060306
  2. FUROSEMIDE [Suspect]
     Indication: CARDIAC FAILURE
     Dosage: 10 MG, QD
     Route: 048
     Dates: start: 20040306, end: 20060306
  3. CARDENTIEL [Suspect]
     Indication: CARDIAC FAILURE
     Dosage: 5 MG, QD
     Route: 048
     Dates: start: 20040307, end: 20060306
  4. MOTILIUM [Concomitant]
     Dosage: 3 U, UNK
     Route: 048
     Dates: start: 20060222, end: 20060223
  5. TIORFAN [Concomitant]
     Indication: DIARRHOEA
     Dosage: 3 U, UNK
     Route: 048
     Dates: start: 20060222, end: 20060223
  6. TAHOR [Concomitant]
     Indication: HYPERCHOLESTEROLAEMIA
     Route: 048
     Dates: start: 20060301

REACTIONS (7)
  - BLOOD PRESSURE DECREASED [None]
  - CIRCULATORY COLLAPSE [None]
  - DEHYDRATION [None]
  - DIARRHOEA [None]
  - HYPOVOLAEMIA [None]
  - RENAL FAILURE ACUTE [None]
  - VOMITING [None]
